FAERS Safety Report 15802362 (Version 1)
Quarter: 2019Q1

REPORT INFORMATION
  Report Type: Spontaneous
  Country: DE (occurrence: DE)
  Receive Date: 20190109
  Receipt Date: 20190109
  Transmission Date: 20190417
  Serious: Yes (Other)
  Sender: FDA-Public Use
  Company Number: DE-GLAXOSMITHKLINE-DE2019002115

PATIENT
  Age: 39 Year
  Sex: Female

DRUGS (1)
  1. LAMISIL [Suspect]
     Active Substance: TERBINAFINE HYDROCHLORIDE
     Indication: DERMATOPHYTOSIS OF NAIL
     Dosage: UNK
     Route: 065

REACTIONS (3)
  - Rash maculo-papular [Unknown]
  - Toxic epidermal necrolysis [Unknown]
  - Skin exfoliation [Not Recovered/Not Resolved]
